FAERS Safety Report 5875969-9 (Version None)
Quarter: 2008Q3

REPORT INFORMATION
  Report Type: 
  Country: None (occurrence: None)
  Receive Date: 20080910
  Receipt Date: 20080829
  Transmission Date: 20090109
  Serious: Yes (Other)
  Sender: FDA-Public Use
  Company Number: US-WYE-H05820108

PATIENT
  Age: 20 Year
  Sex: Male
  Weight: 68.1 kg

DRUGS (1)
  1. ROBITUSSIN COUGH LONG ACTING [Suspect]
     Indication: DRUG ABUSE
     Dosage: 1 FULL BOTTLE
     Route: 048
     Dates: start: 20080828, end: 20080828

REACTIONS (4)
  - ABNORMAL BEHAVIOUR [None]
  - CONFUSIONAL STATE [None]
  - DRUG ABUSE [None]
  - INTENTIONAL OVERDOSE [None]
